FAERS Safety Report 24239809 (Version 6)
Quarter: 2025Q3

REPORT INFORMATION
  Report Type: Report from Study
  Country: CA (occurrence: CA)
  Receive Date: 20240822
  Receipt Date: 20250710
  Transmission Date: 20251021
  Serious: Yes (Other)
  Sender: BAUSCH AND LOMB
  Company Number: CA-BAUSCH-BL-2024-012501

PATIENT
  Age: 23 Year
  Sex: Female

DRUGS (2)
  1. SILIQ [Suspect]
     Active Substance: BRODALUMAB
     Indication: Psoriasis
     Dosage: 210 MG / 1.5 ML, WEEKLY (WEEK 0-2)
     Route: 058
     Dates: start: 20230907, end: 202309
  2. SILIQ [Suspect]
     Active Substance: BRODALUMAB
     Dosage: 210 MG / 1.5 ML, Q2 WEEKS
     Route: 058
     Dates: start: 202310

REACTIONS (12)
  - Wisdom teeth removal [Unknown]
  - Chest pain [Unknown]
  - Dizziness [Recovered/Resolved]
  - Hypoaesthesia [Recovered/Resolved]
  - Hyperventilation [Unknown]
  - Depressed mood [Recovered/Resolved]
  - Loss of personal independence in daily activities [Unknown]
  - Aphasia [Unknown]
  - Vertigo [Unknown]
  - Anxiety [Recovered/Resolved]
  - Balance disorder [Unknown]
  - Gait disturbance [Unknown]

NARRATIVE: CASE EVENT DATE: 20240815
